FAERS Safety Report 5289497-5 (Version None)
Quarter: 2007Q2

REPORT INFORMATION
  Report Type: 
  Country: None (occurrence: None)
  Receive Date: 20070406
  Receipt Date: 20070323
  Transmission Date: 20071010
  Serious: Yes (Other)
  Sender: FDA-Public Use
  Company Number: PHBS2007BR05370

PATIENT
  Age: 74 Year
  Sex: Female

DRUGS (9)
  1. EXELON [Suspect]
     Indication: DEMENTIA ALZHEIMER'S TYPE
     Dosage: 1.5 MG, BID
     Route: 048
     Dates: start: 20060101, end: 20070321
  2. EXELON [Suspect]
     Dosage: 3 MG, ONCE/SINGLE
     Route: 048
     Dates: start: 20070322, end: 20070322
  3. GLUCOFORMIN [Concomitant]
     Indication: DIABETES MELLITUS
     Dosage: 250 MG, BID
     Route: 048
     Dates: start: 19860101
  4. VASTAREL [Concomitant]
     Dosage: 2 TABLETS/DAY
     Route: 048
     Dates: start: 20060101
  5. PLAVIX [Concomitant]
     Indication: HYPERTENSION
     Dosage: 75 MG, QD
     Route: 048
     Dates: start: 20060101
  6. LIPITOR [Concomitant]
     Indication: HYPERCHOLESTEROLAEMIA
     Dosage: 1 TABLET/DAY
     Route: 048
     Dates: start: 20060101
  7. MICARDIS [Concomitant]
     Indication: HYPERTENSION
     Dosage: 2 TABLETS /DAY
     Route: 048
     Dates: start: 20060101
  8. CAPTOPRIL [Concomitant]
     Dosage: UNKNOWN
     Route: 065
     Dates: start: 20060101, end: 20070322
  9. CAPTOPRIL [Concomitant]
     Dosage: AS TREATMENT FOR SYMPTOMS
     Route: 060
     Dates: start: 20070323, end: 20070323

REACTIONS (5)
  - CHILLS [None]
  - HYPERHIDROSIS [None]
  - HYPERTENSION [None]
  - NAUSEA [None]
  - RETCHING [None]
